FAERS Safety Report 8671887 (Version 1)
Quarter: 2012Q4

REPORT INFORMATION
  Report Type: 
  Country: US (occurrence: US)
  Receive Date: 20120905
  Receipt Date: 20120905
  Transmission Date: 20130627
  Serious: Yes (Hospitalization, Other)
  Sender: FDA-Public Use
  Company Number: US-MSD-1207USA004940

PATIENT

DRUGS (3)
  1. PEGINTRON [Suspect]
     Dosage: UNK
     Dates: start: 20120427, end: 20120601
  2. REBETOL [Suspect]
     Dosage: UNK
     Dates: start: 20120427, end: 20120601
  3. TELAPREVIR [Concomitant]
     Indication: HEPATITIS C
     Dosage: UNK
     Dates: start: 20120427, end: 20120601

REACTIONS (5)
  - Anaemia [Unknown]
  - Blood potassium decreased [Unknown]
  - Abasia [Unknown]
  - Dyspnoea [Unknown]
  - Depression [Unknown]
